FAERS Safety Report 26135902 (Version 2)
Quarter: 2025Q4

REPORT INFORMATION
  Report Type: Spontaneous
  Country: AU (occurrence: AU)
  Receive Date: 20251209
  Receipt Date: 20251212
  Transmission Date: 20260117
  Serious: Yes (Disabling, Other)
  Sender: PFIZER
  Company Number: AU-MLMSERVICE-20251124-PI726569-00218-1

PATIENT
  Age: 66 Year
  Sex: Male

DRUGS (1)
  1. METHOTREXATE SODIUM [Suspect]
     Active Substance: METHOTREXATE SODIUM
     Indication: Rheumatoid arthritis
     Dosage: 25 MG
     Route: 058

REACTIONS (4)
  - Leukoencephalopathy [Recovering/Resolving]
  - Neurotoxicity [Recovering/Resolving]
  - Fall [Recovering/Resolving]
  - Off label use [Unknown]
